FAERS Safety Report 9923660 (Version 1)
Quarter: 2014Q1

REPORT INFORMATION
  Report Type: Spontaneous
  Country: US (occurrence: US)
  Receive Date: 20140225
  Receipt Date: 20140225
  Transmission Date: 20141002
  Serious: No
  Sender: FDA-Public Use
  Company Number: US-AMGEN-USASP2013091271

PATIENT
  Age: 40 Year
  Sex: Female

DRUGS (12)
  1. ENBREL [Suspect]
     Indication: ANKYLOSING SPONDYLITIS
     Dosage: 50 MG, Q7D
     Route: 058
     Dates: start: 201307, end: 201311
  2. FOLIC ACID [Concomitant]
     Dosage: UNK
  3. METHOTREXATE [Concomitant]
     Dosage: UNK
  4. PREDNISONE [Concomitant]
     Dosage: UNK
  5. XANAX [Concomitant]
     Dosage: UNK
  6. PLAQUENIL                          /00072602/ [Concomitant]
     Dosage: UNK
  7. TRAZODONE [Concomitant]
     Dosage: UNK
  8. HYDROCODONE/ACETAMINOPHEN          /01554201/ [Concomitant]
     Dosage: UNK
  9. TYLENOL                            /00020001/ [Concomitant]
     Dosage: UNK
  10. BENTYL [Concomitant]
     Dosage: UNK
  11. ORTHO-CYCLEN [Concomitant]
     Dosage: UNK
  12. APRISO [Concomitant]
     Dosage: UNK

REACTIONS (3)
  - Alopecia [Unknown]
  - Onychoclasis [Unknown]
  - Onychomadesis [Unknown]
